FAERS Safety Report 5429120-X (Version None)
Quarter: 2007Q3

REPORT INFORMATION
  Report Type: 
  Country: None (occurrence: None)
  Receive Date: 20070829
  Receipt Date: 20070822
  Transmission Date: 20080115
  Serious: Yes (Hospitalization)
  Sender: FDA-Public Use
  Company Number: US-ASTRAZENECA-2007UW20120

PATIENT
  Age: 86 Year
  Sex: Female
  Weight: 47.7 kg

DRUGS (7)
  1. PULMICORT [Suspect]
     Route: 055
  2. RHINOCORT [Suspect]
     Route: 045
  3. XOPENEX [Suspect]
     Indication: CHRONIC OBSTRUCTIVE PULMONARY DISEASE
     Route: 055
     Dates: start: 20061201, end: 20070401
  4. SPIRIVA [Concomitant]
  5. OXYGEN [Concomitant]
  6. LISINOPRIL [Concomitant]
  7. LEVOTHYROXINE SODIUM [Concomitant]
     Indication: HYPOTHYROIDISM

REACTIONS (3)
  - HYPONATRAEMIA [None]
  - NASAL SEPTUM PERFORATION [None]
  - RASH [None]
